FAERS Safety Report 9462926 (Version 1)
Quarter: 2013Q3

REPORT INFORMATION
  Report Type: Spontaneous
  Country: JP (occurrence: None)
  Receive Date: 20130814
  Receipt Date: 20130814
  Transmission Date: 20140515
  Serious: Yes (Disabling)
  Sender: FDA-Public Use
  Company Number: JP-20130070

PATIENT
  Age: 75 Year
  Sex: Male

DRUGS (3)
  1. LIPIODOL [Suspect]
     Indication: HEPATITIS
     Dosage: 5 ML (5 ML, 1 IN 1 D)
     Route: 013
     Dates: start: 20111212, end: 20111212
  2. FARMORUBICIN [Concomitant]
  3. GELPART (GELATIN) (GELATIN) [Concomitant]

REACTIONS (2)
  - Spinal cord infarction [None]
  - Off label use [None]
